FAERS Safety Report 8020901-5 (Version None)
Quarter: 2011Q4

REPORT INFORMATION
  Report Type: 
  Country: None (occurrence: None)
  Receive Date: 20111228
  Receipt Date: 20111216
  Transmission Date: 20120403
  Serious: Yes (Other)
  Sender: FDA-Public Use
  Company Number: AUR-APL-2011-06244

PATIENT
  Age: 39 Year
  Sex: Female

DRUGS (3)
  1. AMOXICILLIN [Suspect]
     Indication: VAGINAL INFECTION
     Dosage: 1700 MG (850 MG, 2 IN 1 D), ORAL
     Route: 048
     Dates: start: 20111115, end: 20111123
  2. ENBREL [Suspect]
     Indication: RHEUMATOID ARTHRITIS
     Dosage: 50 MG, 1 WK
     Dates: start: 20110801
  3. METHOTREXATE [Concomitant]

REACTIONS (5)
  - FATIGUE [None]
  - VISION BLURRED [None]
  - DIZZINESS [None]
  - VULVOVAGINITIS STREPTOCOCCAL [None]
  - BALANCE DISORDER [None]
